FAERS Safety Report 4334135-9 (Version None)
Quarter: 2004Q2

REPORT INFORMATION
  Report Type: 
  Country: None (occurrence: None)
  Receive Date: 20040405
  Receipt Date: 20040323
  Transmission Date: 20050107
  Serious: Yes (Hospitalization)
  Sender: FDA-Public Use
  Company Number: US-SHR-04-022293

PATIENT
  Age: 44 Year
  Sex: Male

DRUGS (4)
  1. BETASERON [Suspect]
     Indication: MULTIPLE SCLEROSIS
     Dosage: 8 MIU, EVERY 2 D, SUBCUTANEOUS
     Route: 058
     Dates: start: 20021101
  2. LEXAPRO /USA/(ESCITALOPRAM) [Concomitant]
  3. ZANAFLEX [Concomitant]
  4. VICODIN [Concomitant]

REACTIONS (5)
  - ABASIA [None]
  - CATHETER SEPSIS [None]
  - GAIT DISTURBANCE [None]
  - INJECTION SITE CELLULITIS [None]
  - PAIN [None]
